FAERS Safety Report 8910164 (Version 1)
Quarter: 2012Q4

REPORT INFORMATION
  Report Type: 
  Country: CN (occurrence: CN)
  Receive Date: 20121114
  Receipt Date: 20121114
  Transmission Date: 20130627
  Serious: Yes (Life-Threatening, Other)
  Sender: FDA-Public Use
  Company Number: CN-009507513-1211CHN005359

PATIENT
  Age: 45 Year
  Sex: Male

DRUGS (3)
  1. ESMERON [Suspect]
     Dosage: 0.9 to 1 mg/kg
  2. ESMERON [Suspect]
     Dosage: 0.9 to 1 mg/kg
  3. ESMERON [Suspect]
     Dosage: 0.9 to 1 mg/kg

REACTIONS (7)
  - Hypersensitivity [Recovered/Resolved]
  - Rash generalised [Recovered/Resolved]
  - Generalised erythema [Recovered/Resolved]
  - Oxygen saturation decreased [Recovered/Resolved]
  - Heart rate abnormal [Recovered/Resolved]
  - Blood pressure decreased [Recovered/Resolved]
  - Drug hypersensitivity [None]
